FAERS Safety Report 25190590 (Version 2)
Quarter: 2025Q3

REPORT INFORMATION
  Report Type: Spontaneous
  Country: EU (occurrence: EU)
  Receive Date: 20250411
  Receipt Date: 20250803
  Transmission Date: 20251021
  Serious: Yes (Hospitalization, Other)
  Sender: ALEXION PHARMACEUTICALS
  Company Number: 2025004543-000

PATIENT
  Age: 31 Year

DRUGS (6)
  1. OMEPRAZOLE [Suspect]
     Active Substance: OMEPRAZOLE
     Indication: Gastrointestinal malformation
     Dates: start: 20240920, end: 20241002
  2. PIPERACILLIN SODIUM\TAZOBACTAM SODIUM [Suspect]
     Active Substance: PIPERACILLIN SODIUM\TAZOBACTAM SODIUM
     Indication: Pyelonephritis acute
     Dates: start: 20240919, end: 20241001
  3. DEXKETOPROFEN TROMETAMOL [Suspect]
     Active Substance: DEXKETOPROFEN TROMETAMOL
     Indication: Pain
     Dates: start: 20240922, end: 20240928
  4. METAMIZOLE SODIUM [Suspect]
     Active Substance: METAMIZOLE SODIUM
     Indication: Pain
     Dates: start: 20240920, end: 20240921
  5. ZUCLOPENTHIXOL [Concomitant]
     Active Substance: ZUCLOPENTHIXOL
  6. TEMOZOLOMIDE [Concomitant]
     Active Substance: TEMOZOLOMIDE

REACTIONS (3)
  - Tubulointerstitial nephritis [Recovering/Resolving]
  - Acute kidney injury [Unknown]
  - Diabetes insipidus [Unknown]

NARRATIVE: CASE EVENT DATE: 20240922
